FAERS Safety Report 22881354 (Version 3)
Quarter: 2023Q4

REPORT INFORMATION
  Report Type: Report from Study
  Country: US (occurrence: US)
  Receive Date: 20230830
  Receipt Date: 20231018
  Transmission Date: 20240110
  Serious: Yes (Hospitalization)
  Sender: FDA-Public Use
  Company Number: US-JNJFOC-20230850807

PATIENT
  Age: 49 Year
  Sex: Male
  Weight: 63.6 kg

DRUGS (2)
  1. EPOPROSTENOL SODIUM [Suspect]
     Active Substance: EPOPROSTENOL SODIUM
     Indication: Pulmonary hypertension
     Route: 042
  2. SILDENAFIL CITRATE [Concomitant]
     Active Substance: SILDENAFIL CITRATE

REACTIONS (9)
  - Device occlusion [Unknown]
  - Underdose [Unknown]
  - Catheter site pruritus [Unknown]
  - Device leakage [Unknown]
  - Headache [Not Recovered/Not Resolved]
  - Musculoskeletal pain [Unknown]
  - Flushing [Unknown]
  - Dyspnoea exertional [Unknown]
  - Ingrown hair [Recovering/Resolving]

NARRATIVE: CASE EVENT DATE: 20230820
